FAERS Safety Report 8594639-X (Version None)
Quarter: 2012Q3

REPORT INFORMATION
  Report Type: 
  Country: None (occurrence: None)
  Receive Date: 20120815
  Receipt Date: 20120809
  Transmission Date: 20120928
  Serious: No
  Sender: FDA-Public Use
  Company Number: US-PFIZER INC-2012182885

PATIENT
  Age: 58 Year
  Sex: Female
  Weight: 46.259 kg

DRUGS (4)
  1. PREMARIN [Suspect]
     Dosage: UNK, 1X/DAY
     Route: 067
     Dates: end: 20120727
  2. PREMARIN [Suspect]
  3. PREMARIN [Suspect]
     Indication: VULVOVAGINAL DRYNESS
     Dosage: UNK, 1X/DAY
     Route: 067
     Dates: start: 20120601, end: 20120601
  4. PREMARIN [Suspect]
     Dosage: UNK
     Route: 067
     Dates: start: 20120723

REACTIONS (2)
  - HYPERSENSITIVITY [None]
  - VULVOVAGINAL SWELLING [None]
